FAERS Safety Report 7835791-0 (Version None)
Quarter: 2011Q4

REPORT INFORMATION
  Report Type: 
  Country: None (occurrence: None)
  Receive Date: 20111024
  Receipt Date: 20111011
  Transmission Date: 20120403
  Serious: Yes (Other)
  Sender: FDA-Public Use
  Company Number: US-BAYER-2011-083315

PATIENT
  Age: 30 Year
  Sex: Female
  Weight: 73 kg

DRUGS (1)
  1. YAZ [Suspect]
     Dosage: UNK
     Dates: start: 20070501, end: 20080601

REACTIONS (5)
  - ABORTION SPONTANEOUS [None]
  - PAIN [None]
  - INJURY [None]
  - CHOLELITHIASIS [None]
  - EMOTIONAL DISTRESS [None]
